FAERS Safety Report 5523440-6 (Version None)
Quarter: 2007Q4

REPORT INFORMATION
  Report Type: 
  Country: None (occurrence: None)
  Receive Date: 20071116
  Receipt Date: 20071107
  Transmission Date: 20080405
  Serious: Yes (Hospitalization)
  Sender: FDA-Public Use
  Company Number: VISP-NO-0711S-0484

PATIENT
  Age: 73 Year
  Sex: Female

DRUGS (5)
  1. VISIPAQUE [Suspect]
     Indication: DRUG USE FOR UNKNOWN INDICATION
     Dosage: 100 ML, SINGLE DOSE, I.A.
     Route: 013
     Dates: start: 20071022, end: 20071022
  2. PROPRANOLOL [Concomitant]
  3. ENALAPRIL [Concomitant]
  4. ACETYLSALICYLIC ACID SRT [Concomitant]
  5. CLOPIDOGREL [Concomitant]

REACTIONS (1)
  - VASOCONSTRICTION [None]
